FAERS Safety Report 21861093 (Version 1)
Quarter: 2023Q1

REPORT INFORMATION
  Report Type: Spontaneous
  Country: AU (occurrence: AU)
  Receive Date: 20230113
  Receipt Date: 20230113
  Transmission Date: 20230417
  Serious: Yes (Other)
  Sender: FDA-Public Use
  Company Number: AU-ELI_LILLY_AND_COMPANY-AU202301000877

PATIENT

DRUGS (1)
  1. CYMBALTA [Suspect]
     Active Substance: DULOXETINE HYDROCHLORIDE
     Indication: Perinatal depression
     Dosage: 60 MG, UNKNOWN
     Route: 065
     Dates: end: 20221230

REACTIONS (7)
  - Electric shock sensation [Unknown]
  - Suicidal ideation [Unknown]
  - Mental disorder [Unknown]
  - Major depression [Unknown]
  - Post-traumatic stress disorder [Unknown]
  - Drug withdrawal syndrome [Unknown]
  - Drug ineffective [Unknown]

NARRATIVE: CASE EVENT DATE: 20220401
